FAERS Safety Report 14320467 (Version 15)
Quarter: 2019Q2

REPORT INFORMATION
  Report Type: Report from Study
  Country: US (occurrence: US)
  Receive Date: 20171222
  Receipt Date: 20190624
  Transmission Date: 20190711
  Serious: Yes (Hospitalization)
  Sender: FDA-Public Use
  Company Number: US-ACTELION-A-US2017-164527

PATIENT
  Age: 75 Year
  Sex: Female
  Weight: 99.77 kg

DRUGS (5)
  1. TRACLEER [Suspect]
     Active Substance: BOSENTAN
     Indication: PULMONARY ARTERIAL HYPERTENSION
     Dosage: 125 MG, BID
     Route: 048
  2. ROCEPHIN [Concomitant]
     Active Substance: CEFTRIAXONE SODIUM
  3. CORTISONE [Concomitant]
     Active Substance: CORTISONE\HYDROCORTISONE
  4. REVATIO [Concomitant]
     Active Substance: SILDENAFIL CITRATE
  5. OXYGEN. [Concomitant]
     Active Substance: OXYGEN

REACTIONS (41)
  - Fall [Unknown]
  - Syncope [Unknown]
  - Chest pain [Unknown]
  - Adverse event [Unknown]
  - Hypotension [Unknown]
  - Autonomic nervous system imbalance [Unknown]
  - Feeling abnormal [Unknown]
  - Epistaxis [Unknown]
  - Gait disturbance [Unknown]
  - Sinus disorder [Unknown]
  - Cough [Unknown]
  - Loss of consciousness [Unknown]
  - Oral fungal infection [Unknown]
  - Skin laceration [Unknown]
  - Cellulitis [Unknown]
  - Productive cough [Not Recovered/Not Resolved]
  - Fatigue [Unknown]
  - Chest discomfort [Unknown]
  - Anaemia [Unknown]
  - Dyspnoea at rest [Unknown]
  - Hernia repair [Unknown]
  - Atrial fibrillation [Not Recovered/Not Resolved]
  - Joint injury [Unknown]
  - Contusion [Unknown]
  - Stress [Unknown]
  - Heart rate increased [Recovering/Resolving]
  - Head injury [Unknown]
  - Synovial cyst removal [Unknown]
  - Sputum discoloured [Unknown]
  - Back pain [Unknown]
  - Limb injury [Unknown]
  - Blister [Unknown]
  - Dyspnoea exertional [Unknown]
  - Presyncope [Unknown]
  - Oxygen saturation decreased [Unknown]
  - Cardiac ablation [Unknown]
  - Pneumonia [Unknown]
  - Dizziness [Unknown]
  - Heart rate irregular [Recovering/Resolving]
  - Decreased appetite [Unknown]
  - Haemoglobin decreased [Unknown]

NARRATIVE: CASE EVENT DATE: 201808
